FAERS Safety Report 10256351 (Version 1)
Quarter: 2014Q2

REPORT INFORMATION
  Report Type: Spontaneous
  Country: SE (occurrence: SE)
  Receive Date: 20140624
  Receipt Date: 20140624
  Transmission Date: 20141212
  Serious: Yes (Other)
  Sender: FDA-Public Use
  Company Number: SE-TEVA-489805ISR

PATIENT
  Age: 50 Year
  Sex: Female
  Weight: 66 kg

DRUGS (1)
  1. MIRTAZAPINE [Suspect]
     Indication: DEPRESSION
     Route: 048
     Dates: start: 199701, end: 201310

REACTIONS (2)
  - Altered state of consciousness [Recovered/Resolved]
  - Loss of consciousness [Recovered/Resolved]
